FAERS Safety Report 13048201 (Version 1)
Quarter: 2016Q4

REPORT INFORMATION
  Report Type: Report from Study
  Country: JP (occurrence: JP)
  Receive Date: 20161220
  Receipt Date: 20161220
  Transmission Date: 20170207
  Serious: Yes (Life-Threatening, Hospitalization, Other)
  Sender: FDA-Public Use
  Company Number: JP-BAUSCH-BL-2016-031907

PATIENT
  Age: 66 Year
  Sex: Female
  Weight: 40 kg

DRUGS (5)
  1. TARGRETIN [Suspect]
     Active Substance: BEXAROTENE
     Indication: ADULT T-CELL LYMPHOMA/LEUKAEMIA
     Route: 048
     Dates: start: 20160805
  2. ETOPOSIDE. [Suspect]
     Active Substance: ETOPOSIDE
     Route: 048
     Dates: start: 20130516
  3. SOBUZOXANE [Suspect]
     Active Substance: SOBUZOXANE
     Indication: ADULT T-CELL LYMPHOMA/LEUKAEMIA
     Route: 048
     Dates: start: 20130516
  4. POTELIGEO [Suspect]
     Active Substance: MOGAMULIZUMAB
     Dosage: UNKNOWN (1 MG/KG)
     Route: 042
     Dates: start: 20161011
  5. POTELIGEO [Suspect]
     Active Substance: MOGAMULIZUMAB
     Indication: ADULT T-CELL LYMPHOMA/LEUKAEMIA
     Dosage: UNKNOWN (1 MG/KG)
     Route: 042
     Dates: start: 20121010, end: 20121203

REACTIONS (10)
  - Tongue disorder [Unknown]
  - Fungal infection [Recovered/Resolved]
  - Febrile neutropenia [Recovered/Resolved]
  - Hypertriglyceridaemia [Unknown]
  - Cytomegalovirus infection [Recovered/Resolved]
  - Pneumonia [Recovered/Resolved]
  - Pancreatic disorder [Unknown]
  - Anaemia [Recovered/Resolved]
  - Hypogammaglobulinaemia [Recovering/Resolving]
  - Hypothyroidism [Unknown]

NARRATIVE: CASE EVENT DATE: 20160808
